FAERS Safety Report 23143565 (Version 1)
Quarter: 2023Q4

REPORT INFORMATION
  Report Type: Spontaneous
  Country: US (occurrence: US)
  Receive Date: 20231103
  Receipt Date: 20231103
  Transmission Date: 20240110
  Serious: Yes (Other)
  Sender: FDA-Public Use
  Company Number: US-GLAXOSMITHKLINE-USCH2023AMR052119

PATIENT

DRUGS (14)
  1. ADVIL [Suspect]
     Active Substance: IBUPROFEN
     Indication: Headache
     Dosage: UNK
     Dates: start: 202310
  2. ADVIL [Suspect]
     Active Substance: IBUPROFEN
     Indication: Neck pain
  3. EXCEDRIN [Suspect]
     Active Substance: ACETAMINOPHEN\ASPIRIN\CAFFEINE
     Indication: Product used for unknown indication
     Dosage: UNK
     Dates: start: 202310
  4. TYVASO [Suspect]
     Active Substance: TREPROSTINIL
     Indication: Pulmonary arterial hypertension
     Dosage: 18 ?G, QID
     Dates: start: 20231003, end: 20231003
  5. TYVASO [Suspect]
     Active Substance: TREPROSTINIL
     Dosage: 24 ?G, QID
     Dates: start: 202310, end: 202310
  6. TYVASO [Suspect]
     Active Substance: TREPROSTINIL
     Dosage: 30 ?G, QID
     Dates: start: 202310, end: 202310
  7. SYMBICORT [Concomitant]
     Active Substance: BUDESONIDE\FORMOTEROL FUMARATE DIHYDRATE
     Indication: Pulmonary arterial hypertension
     Dosage: UNK
     Dates: start: 202310
  8. ZONISAMIDE [Concomitant]
     Active Substance: ZONISAMIDE
     Indication: Pulmonary arterial hypertension
     Dosage: UNK
     Dates: start: 202310
  9. ATORVASTATIN CALCIUM [Concomitant]
     Active Substance: ATORVASTATIN CALCIUM
     Indication: Pulmonary arterial hypertension
     Dosage: UNK
     Dates: start: 202310
  10. LIDOCAINE [Concomitant]
     Active Substance: LIDOCAINE
     Indication: Pulmonary arterial hypertension
     Dosage: UNK
     Dates: start: 202310
  11. OXYGEN [Concomitant]
     Active Substance: OXYGEN
     Indication: Pulmonary arterial hypertension
     Dosage: UNK
     Dates: start: 202310
  12. ALBUTEROL SULFATE [Concomitant]
     Active Substance: ALBUTEROL SULFATE
     Indication: Pulmonary arterial hypertension
     Dosage: UNK
     Dates: start: 202310
  13. ESBRIET [Concomitant]
     Active Substance: PIRFENIDONE
     Indication: Pulmonary arterial hypertension
     Dosage: UNK
     Dates: start: 202310
  14. PANTOPRAZOLE SODIUM [Concomitant]
     Active Substance: PANTOPRAZOLE SODIUM
     Indication: Pulmonary arterial hypertension
     Dosage: UNK
     Dates: start: 202310

REACTIONS (16)
  - Neoplasm malignant [Unknown]
  - Headache [Recovered/Resolved]
  - Nausea [Recovered/Resolved]
  - Abdominal discomfort [Recovered/Resolved]
  - Fatigue [Recovered/Resolved]
  - COVID-19 [Unknown]
  - Chronic obstructive pulmonary disease [Unknown]
  - Dyspnoea [Unknown]
  - Throat irritation [Unknown]
  - Cough [Not Recovered/Not Resolved]
  - Neck pain [Unknown]
  - Weight decreased [Unknown]
  - Decreased appetite [Unknown]
  - Seasonal allergy [Unknown]
  - Sinus disorder [Unknown]
  - Drug ineffective [Unknown]

NARRATIVE: CASE EVENT DATE: 20231001
